FAERS Safety Report 5021137-2 (Version None)
Quarter: 2006Q2

REPORT INFORMATION
  Report Type: 
  Country: None (occurrence: None)
  Receive Date: 20060607
  Receipt Date: 20060607
  Transmission Date: 20061013
  Serious: Yes (Hospitalization)
  Sender: FDA-Public Use
  Company Number: None

PATIENT
  Sex: Male

DRUGS (4)
  1. CAMPTOSAR [Suspect]
     Indication: PANCREATIC CARCINOMA
     Dosage: 7MG/M2 X 5DAYS CONT IV
     Route: 042
     Dates: start: 20060410
  2. CAMPTOSAR [Suspect]
     Indication: PANCREATIC CARCINOMA
     Dosage: 7MG/M2 X 5DAYS CONT IV
     Route: 042
     Dates: start: 20060417
  3. CAMPTOSAR [Suspect]
     Indication: PANCREATIC CARCINOMA
     Dosage: 7MG/M2 X 5DAYS CONT IV
     Route: 042
     Dates: start: 20060424
  4. CAMPTOSAR [Suspect]
     Indication: PANCREATIC CARCINOMA
     Dosage: 7MG/M2 X 5DAYS CONT IV
     Route: 042
     Dates: start: 20060508

REACTIONS (6)
  - ABDOMINAL PAIN [None]
  - CLOSTRIDIAL INFECTION [None]
  - DIARRHOEA [None]
  - DIZZINESS [None]
  - NAUSEA [None]
  - VOMITING [None]
